FAERS Safety Report 7365361-2 (Version None)
Quarter: 2011Q1

REPORT INFORMATION
  Report Type: 
  Country: None (occurrence: None)
  Receive Date: 20110322
  Receipt Date: 20110315
  Transmission Date: 20110831
  Serious: No
  Sender: FDA-Public Use
  Company Number: US-BIOGENIDEC-2011BI010024

PATIENT
  Age: 56 Year
  Sex: Female

DRUGS (6)
  1. TYSABRI [Suspect]
     Indication: MULTIPLE SCLEROSIS
     Route: 042
     Dates: start: 20100317
  2. NORCO [Concomitant]
     Indication: BACK PAIN
     Dates: start: 20050101
  3. TYSABRI [Suspect]
     Route: 042
     Dates: start: 20071129, end: 20081204
  4. METHADONE [Concomitant]
     Indication: PAIN IN EXTREMITY
     Dates: start: 20050101
  5. METHADONE [Concomitant]
     Indication: BACK PAIN
     Dates: start: 20050101
  6. NORCO [Concomitant]
     Indication: PAIN IN EXTREMITY
     Dates: start: 20050101

REACTIONS (5)
  - BACK PAIN [None]
  - JOINT INJURY [None]
  - WEIGHT INCREASED [None]
  - FRUSTRATION [None]
  - PAIN IN EXTREMITY [None]
